FAERS Safety Report 16045505 (Version 3)
Quarter: 2019Q4

REPORT INFORMATION
  Report Type: Spontaneous
  Country: US (occurrence: US)
  Receive Date: 20190307
  Receipt Date: 20191025
  Transmission Date: 20200122
  Serious: Yes (Death, Other)
  Sender: FDA-Public Use
  Company Number: US-ASTRAZENECA-2019SE11608

PATIENT
  Sex: Male

DRUGS (18)
  1. AMLODIPINE [Concomitant]
     Active Substance: AMLODIPINE BESYLATE
  2. SEVELAMER [Concomitant]
     Active Substance: SEVELAMER
  3. WARFARIN [Concomitant]
     Active Substance: WARFARIN
  4. EPOETIN [Concomitant]
     Active Substance: ERYTHROPOIETIN
  5. CLONIDINE. [Concomitant]
     Active Substance: CLONIDINE
  6. SODIUM CHLORIDE. [Concomitant]
     Active Substance: SODIUM CHLORIDE
  7. INSULIN [Concomitant]
     Active Substance: INSULIN NOS
  8. METOPROLOL TARTRATE. [Concomitant]
     Active Substance: METOPROLOL TARTRATE
  9. LISINOPRIL. [Concomitant]
     Active Substance: LISINOPRIL
  10. VANCOMYCIN [Concomitant]
     Active Substance: VANCOMYCIN
  11. ASPIRIN. [Concomitant]
     Active Substance: ASPIRIN
  12. PAROXETINE. [Concomitant]
     Active Substance: PAROXETINE
  13. VANCOMYCIN [Concomitant]
     Active Substance: VANCOMYCIN
  14. COUMADIN [Concomitant]
     Active Substance: WARFARIN SODIUM
  15. NEXIUM [Suspect]
     Active Substance: ESOMEPRAZOLE MAGNESIUM
     Dosage: VARIOUS DATES AND YEARS
     Route: 048
  16. ATORVASTATIN [Concomitant]
     Active Substance: ATORVASTATIN
  17. CLONIDINE. [Concomitant]
     Active Substance: CLONIDINE
  18. CLONIDINE. [Concomitant]
     Active Substance: CLONIDINE

REACTIONS (8)
  - End stage renal disease [Unknown]
  - Chronic kidney disease [Unknown]
  - Rebound acid hypersecretion [Unknown]
  - Nephrogenic anaemia [Unknown]
  - Cardio-respiratory arrest [Fatal]
  - Myocardial infarction [Fatal]
  - Tubulointerstitial nephritis [Unknown]
  - Renal failure [Unknown]
